FAERS Safety Report 8062250-5 (Version None)
Quarter: 2012Q1

REPORT INFORMATION
  Report Type: 
  Country: None (occurrence: None)
  Receive Date: 20120118
  Receipt Date: 20120103
  Transmission Date: 20120608
  Serious: Yes (Other)
  Sender: FDA-Public Use
  Company Number: 2011-503

PATIENT
  Age: 54 Year
  Sex: Female
  Weight: 71.8 kg

DRUGS (6)
  1. METHADONE HCL [Concomitant]
  2. PRIALT [Suspect]
     Indication: PAIN
     Dosage: 0.1 UG, ONCE/HOUR, INTRATHECAL
     Route: 037
     Dates: start: 20111020, end: 20111110
  3. SUBOXONE [Concomitant]
  4. NORTRIPTYLINE HCL [Concomitant]
  5. CYMBALTA [Concomitant]
  6. LORAZEPAM [Concomitant]

REACTIONS (2)
  - DIZZINESS [None]
  - CARDIAC FAILURE CONGESTIVE [None]
